FAERS Safety Report 15171418 (Version 1)
Quarter: 2018Q3

REPORT INFORMATION
  Report Type: Spontaneous
  Country: JP (occurrence: JP)
  Receive Date: 20180720
  Receipt Date: 20180720
  Transmission Date: 20181010
  Serious: Yes (Hospitalization, Other)
  Sender: FDA-Public Use
  Company Number: JP-TEVA-2018-JP-929574

PATIENT
  Age: 31 Year
  Sex: Female

DRUGS (6)
  1. EPOPROSTENOL. [Suspect]
     Active Substance: EPOPROSTENOL
     Indication: PULMONARY ARTERIAL HYPERTENSION
     Dosage: CONTINUOUS INFUSION
     Route: 041
  2. EPOPROSTENOL. [Suspect]
     Active Substance: EPOPROSTENOL
     Dosage: 2.5 NG/KG/MIN
     Route: 041
  3. SILDENAFIL. [Concomitant]
     Active Substance: SILDENAFIL
     Dosage: 60 MILLIGRAM DAILY;
     Route: 065
  4. PREDNISOLONE. [Concomitant]
     Active Substance: PREDNISOLONE
     Dosage: 25 MILLIGRAM DAILY;
     Route: 065
  5. HEPARIN [Concomitant]
     Active Substance: HEPARIN SODIUM
     Indication: DEEP VEIN THROMBOSIS
     Dosage: ADMINISTERED UNTIL CAESAREAN SECTION
     Route: 042
  6. BMS [Concomitant]
     Indication: MATERNAL THERAPY TO ENHANCE FOETAL LUNG MATURITY
     Dosage: 12 MILLIGRAM DAILY;
     Route: 030

REACTIONS (3)
  - Platelet count decreased [Recovering/Resolving]
  - Live birth [Unknown]
  - Maternal exposure during pregnancy [Unknown]
